FAERS Safety Report 7484130-6 (Version None)
Quarter: 2011Q2

REPORT INFORMATION
  Report Type: 
  Country: None (occurrence: None)
  Receive Date: 20110509
  Receipt Date: 20110428
  Transmission Date: 20111010
  Serious: Yes (Death)
  Sender: FDA-Public Use
  Company Number: GB-ACCORD-008921

PATIENT
  Age: 44 Year
  Sex: Male

DRUGS (7)
  1. DOXORUBICIN HCL [Suspect]
     Indication: BURKITT'S LYMPHOMA
     Dosage: INTRAVNEOUS (NOT OTHERWISE SPECIFIED)
     Route: 042
  2. IFOSFAMIDE [Suspect]
     Indication: BURKITT'S LYMPHOMA
  3. CYTARABINE [Suspect]
     Indication: BURKITT'S LYMPHOMA
  4. ETOPOSIDE [Suspect]
     Indication: BURKITT'S LYMPHOMA
  5. VINCRISTINE [Suspect]
     Indication: BURKITT'S LYMPHOMA
  6. CYCLOPHOSPHAMIDE [Suspect]
     Indication: BURKITT'S LYMPHOMA
  7. METHOTREXATE [Suspect]
     Indication: BURKITT'S LYMPHOMA

REACTIONS (3)
  - NEOPLASM PROGRESSION [None]
  - BURKITT'S LYMPHOMA [None]
  - OFF LABEL USE [None]
